FAERS Safety Report 4843650-0 (Version None)
Quarter: 2005Q4

REPORT INFORMATION
  Report Type: 
  Country: None (occurrence: None)
  Receive Date: 20051129
  Receipt Date: 20051115
  Transmission Date: 20060501
  Serious: Yes (Death, Hospitalization)
  Sender: FDA-Public Use
  Company Number: 104884

PATIENT
  Age: 73 Year
  Sex: Female

DRUGS (4)
  1. RITUXAN                                                             (R [Suspect]
     Indication: NON-HODGKIN'S LYMPHOMA
     Dosage: INTRAVENOUS
     Route: 042
     Dates: start: 20020722
  2. FILGRASTIM (FILGRASTIM) [Concomitant]
  3. PANIPENEM (PANIPENEM) [Concomitant]
  4. FLUCONAZOLE [Concomitant]

REACTIONS (10)
  - BLOOD PRESSURE SYSTOLIC DECREASED [None]
  - CELLULITIS [None]
  - DYSPNOEA [None]
  - LIP ULCERATION [None]
  - PYREXIA [None]
  - RESPIRATORY FAILURE [None]
  - SEPTIC SHOCK [None]
  - STRIDOR [None]
  - SWELLING FACE [None]
  - TONGUE ULCERATION [None]
